FAERS Safety Report 24575260 (Version 1)
Quarter: 2024Q4

REPORT INFORMATION
  Report Type: Spontaneous
  Country: KR (occurrence: KR)
  Receive Date: 20241104
  Receipt Date: 20241104
  Transmission Date: 20250114
  Serious: Yes (Other)
  Sender: CHEPLAPHARM
  Company Number: KR-CHEPLA-2024013787

PATIENT
  Age: 45 Year
  Sex: Female

DRUGS (2)
  1. VALGANCICLOVIR [Suspect]
     Active Substance: VALGANCICLOVIR
     Indication: Cytomegalovirus infection
     Route: 048
  2. GANCICLOVIR [Suspect]
     Active Substance: GANCICLOVIR
     Indication: Cytomegalovirus chorioretinitis
     Dosage: ROA: INTRAVITREAL USE; SINGLE PREEMPTIVE DOSE; 2.0 MG/0.1 ML
     Route: 031

REACTIONS (3)
  - Autoimmune retinopathy [Not Recovered/Not Resolved]
  - Off label use [Unknown]
  - Off label use [Unknown]
